FAERS Safety Report 24336306 (Version 1)
Quarter: 2024Q3

REPORT INFORMATION
  Report Type: Report from Study
  Country: US (occurrence: US)
  Receive Date: 20240919
  Receipt Date: 20240919
  Transmission Date: 20241016
  Serious: No
  Sender: ROCHE
  Company Number: US-ROCHE-3515154

PATIENT
  Age: 45 Year
  Sex: Female

DRUGS (14)
  1. TAMIFLU [Suspect]
     Active Substance: OSELTAMIVIR PHOSPHATE
     Indication: Product used for unknown indication
     Route: 048
  2. XOLAIR [Suspect]
     Active Substance: OMALIZUMAB
     Indication: Asthma
     Route: 058
  3. XOLAIR [Suspect]
     Active Substance: OMALIZUMAB
  4. ADVIL [Concomitant]
     Active Substance: IBUPROFEN\IBUPROFEN SODIUM
  5. MICROZIDE (UNITED STATES) [Concomitant]
  6. KLOR-CON [Concomitant]
     Active Substance: POTASSIUM CHLORIDE
  7. SINGULAIR [Concomitant]
     Active Substance: MONTELUKAST SODIUM
  8. ZYRTEC [Concomitant]
     Active Substance: CETIRIZINE HYDROCHLORIDE
  9. PROTONIX [Concomitant]
     Active Substance: PANTOPRAZOLE SODIUM
  10. PEPCID [Concomitant]
     Active Substance: FAMOTIDINE
  11. FLONASE [Concomitant]
     Active Substance: FLUTICASONE PROPIONATE
  12. DUONEB [Concomitant]
     Active Substance: ALBUTEROL SULFATE\IPRATROPIUM BROMIDE
  13. VENTOLIN HFA [Concomitant]
     Active Substance: ALBUTEROL SULFATE
  14. DEPO-PROVERA [Concomitant]
     Active Substance: MEDROXYPROGESTERONE ACETATE

REACTIONS (11)
  - Cough [Unknown]
  - Wheezing [Unknown]
  - Lower respiratory tract congestion [Unknown]
  - Gastrointestinal sounds abnormal [Unknown]
  - Sinus congestion [Unknown]
  - Chest discomfort [Unknown]
  - Dyspnoea [Unknown]
  - Malaise [Unknown]
  - Sputum discoloured [Unknown]
  - Nausea [Unknown]
  - Asthma [Unknown]
